FAERS Safety Report 25536025 (Version 1)
Quarter: 2025Q3

REPORT INFORMATION
  Report Type: Spontaneous
  Country: US (occurrence: None)
  Receive Date: 20250709
  Receipt Date: 20250709
  Transmission Date: 20251021
  Serious: No
  Sender: FDA-CTU
  Company Number: None

PATIENT
  Age: 25 Year
  Sex: Female
  Weight: 57.6 kg

DRUGS (1)
  1. UNSEEN SUNSCREEN BROAD SPECTRUM SPF 40 [Suspect]
     Active Substance: AVOBENZONE\HOMOSALATE\OCTINOXATE\OCTISALATE

REACTIONS (2)
  - Application site rash [None]
  - Application site dermatitis [None]

NARRATIVE: CASE EVENT DATE: 20250708
